FAERS Safety Report 5220491-6 (Version None)
Quarter: 2007Q1

REPORT INFORMATION
  Report Type: 
  Country: None (occurrence: None)
  Receive Date: 20070126
  Receipt Date: 20070117
  Transmission Date: 20070707
  Serious: Yes (Other)
  Sender: FDA-Public Use
  Company Number: ES-JNJFOC-20061103872

PATIENT
  Age: 58 Year
  Sex: Female
  Weight: 61 kg

DRUGS (6)
  1. REMICADE [Suspect]
     Dosage: 3 MG/KG
     Route: 042
  2. REMICADE [Suspect]
     Indication: RHEUMATOID ARTHRITIS
     Dosage: 3 MG/KG
     Route: 042
  3. AIRTAL [Concomitant]
     Route: 065
  4. ADOLONTA [Concomitant]
     Route: 065
  5. ARAVA [Concomitant]
     Route: 065
  6. URBASON [Concomitant]
     Route: 065

REACTIONS (13)
  - BRADYCARDIA [None]
  - BRONCHOSPASM [None]
  - CHILLS [None]
  - HYPERHIDROSIS [None]
  - HYPOTENSION [None]
  - INFUSION RELATED REACTION [None]
  - NAUSEA [None]
  - PALPITATIONS [None]
  - PYREXIA [None]
  - RASH [None]
  - TACHYCARDIA [None]
  - VOMITING [None]
  - WHEEZING [None]
